FAERS Safety Report 8908419 (Version 3)
Quarter: 2013Q1

REPORT INFORMATION
  Report Type: Spontaneous
  Country: US (occurrence: US)
  Receive Date: 20121114
  Receipt Date: 20130225
  Transmission Date: 20140127
  Serious: Yes (Hospitalization, Disabling, Other)
  Sender: FDA-Public Use
  Company Number: US-009507513-1103USA00917

PATIENT
  Sex: Female
  Weight: 78.91 kg

DRUGS (7)
  1. FOSAMAX [Suspect]
     Indication: OSTEOPOROSIS
     Dosage: 10 MG, UNK
     Route: 048
     Dates: start: 1995, end: 2000
  2. FOSAMAX [Suspect]
     Dosage: 70 MG, QW
     Route: 048
     Dates: start: 2000, end: 200804
  3. FOSAMAX [Suspect]
     Dosage: 70 MG, UNK
     Route: 048
     Dates: start: 200805, end: 201005
  4. ALENDRONATE SODIUM [Suspect]
     Indication: PRODUCT USED FOR UNKNOWN INDICATION
     Dosage: 70 MG, UNK
     Route: 048
     Dates: start: 200802
  5. CALCIUM (UNSPECIFIED) [Concomitant]
     Dosage: 600 MG, BID
     Route: 048
     Dates: start: 1995
  6. VITAMINS (UNSPECIFIED) [Concomitant]
     Dosage: UNK
     Route: 048
     Dates: start: 2000
  7. VITAMIN D (UNSPECIFIED) [Concomitant]
     Dosage: 400 IU, QD
     Route: 048
     Dates: start: 1995

REACTIONS (39)
  - Femur fracture [Not Recovered/Not Resolved]
  - Open reduction of fracture [Unknown]
  - Fall [Unknown]
  - Cyst [Unknown]
  - Campylobacter infection [Recovered/Resolved]
  - Colitis [Recovered/Resolved]
  - Dehydration [Recovering/Resolving]
  - Hypokalaemia [Recovering/Resolving]
  - Hypomagnesaemia [Recovering/Resolving]
  - Iron deficiency anaemia [Unknown]
  - Type 2 diabetes mellitus [Unknown]
  - Duodenectomy [Unknown]
  - Muscle spasms [Unknown]
  - Hypophosphataemia [Recovering/Resolving]
  - Tooth extraction [Unknown]
  - Foot fracture [Recovering/Resolving]
  - Endodontic procedure [Unknown]
  - Endodontic procedure [Unknown]
  - Endodontic procedure [Unknown]
  - Foot fracture [Unknown]
  - Peptic ulcer [Unknown]
  - Hypertension [Unknown]
  - Basedow^s disease [Unknown]
  - Pernicious anaemia [Unknown]
  - Hyperthyroidism [Unknown]
  - Hypothyroidism [Unknown]
  - Hysterectomy [Unknown]
  - Smear cervix abnormal [Unknown]
  - Fibrocystic breast disease [Unknown]
  - Rosacea [Unknown]
  - Bursitis [Unknown]
  - Gait deviation [Unknown]
  - Depression [Unknown]
  - Sleep apnoea syndrome [Unknown]
  - Tendonitis [Unknown]
  - Drug intolerance [Unknown]
  - Small intestine ulcer [Unknown]
  - Gastrointestinal tract adenoma [Unknown]
  - Restless legs syndrome [Unknown]
